FAERS Safety Report 9931447 (Version 2)
Quarter: 2014Q1

REPORT INFORMATION
  Report Type: Spontaneous
  Country: JP (occurrence: JP)
  Receive Date: 20140228
  Receipt Date: 20140325
  Transmission Date: 20141002
  Serious: Yes (Death)
  Sender: FDA-Public Use
  Company Number: JP-ROCHE-1356135

PATIENT
  Age: 74 Year
  Sex: Male

DRUGS (5)
  1. AVASTIN [Suspect]
     Indication: COLON CANCER RECURRENT
     Route: 041
     Dates: start: 20131114, end: 20131211
  2. AVASTIN [Suspect]
     Indication: COLON CANCER RECURRENT
     Route: 041
     Dates: start: 20131212, end: 20140108
  3. AVASTIN [Suspect]
     Indication: COLON CANCER RECURRENT
     Route: 041
     Dates: start: 20140109, end: 20140129
  4. AVASTIN [Suspect]
     Indication: COLON CANCER RECURRENT
     Route: 041
     Dates: start: 20140130, end: 20140214
  5. TS-1 [Suspect]
     Indication: COLON CANCER RECURRENT
     Dosage: ONE ADMINISTERING WEEK OF TWO WEEKS OR TWO WEEKLY HOLIDAY MEDICINE
     Route: 048
     Dates: start: 20131114

REACTIONS (4)
  - Thrombotic thrombocytopenic purpura [Fatal]
  - Disseminated intravascular coagulation [Fatal]
  - Haemolytic uraemic syndrome [Fatal]
  - Diarrhoea [Unknown]
